FAERS Safety Report 9617784 (Version 2)
Quarter: 2013Q4

REPORT INFORMATION
  Report Type: Spontaneous
  Country: GR (occurrence: GR)
  Receive Date: 20131011
  Receipt Date: 20131011
  Transmission Date: 20140711
  Serious: Yes (Life-Threatening, Other)
  Sender: FDA-Public Use
  Company Number: GR-009507513-1307GRC015855

PATIENT
  Age: 71 Year
  Sex: Female
  Weight: 70 kg

DRUGS (11)
  1. ROCURONIUM BROMIDE [Suspect]
     Indication: NEUROMUSCULAR BLOCKADE
     Dosage: DAILY DOSE: 50 MG
     Route: 042
     Dates: start: 20130523, end: 20130523
  2. BRIDION [Suspect]
     Dosage: 2MG/KG DAILY DOSE
  3. PROPOFOL [Concomitant]
     Dosage: 150 MG, ONCE
     Route: 042
  4. PROPOFOL [Concomitant]
     Dosage: 200 MG/HR
     Route: 041
  5. ULTIVA [Concomitant]
     Dosage: 50-100 Y/HR
     Route: 041
  6. MIDAZOLAM [Concomitant]
     Dosage: 2 MG, ONCE
     Route: 042
  7. FENTANYL [Concomitant]
     Dosage: 200 Y / SINGLE DOSE
     Route: 042
  8. ONDANSETRON [Concomitant]
     Dosage: 4 MG, ONCE
  9. APOTEL [Concomitant]
     Dosage: 1 GR
  10. DYNASTAT [Concomitant]
     Dosage: 40 MG, ONCE
     Route: 042
  11. TRAMAL [Concomitant]
     Dosage: 100 MG, ONCE
     Route: 042

REACTIONS (2)
  - Apnoea [Recovered/Resolved]
  - Recurrence of neuromuscular blockade [Unknown]
